FAERS Safety Report 6385173-6 (Version None)
Quarter: 2009Q4

REPORT INFORMATION
  Report Type: 
  Country: None (occurrence: None)
  Receive Date: 20091002
  Receipt Date: 20081212
  Transmission Date: 20100525
  Serious: No
  Sender: FDA-Public Use
  Company Number: US-ASTRAZENECA-2005UW05358

PATIENT
  Age: 67 Year
  Sex: Female
  Weight: 72.6 kg

DRUGS (2)
  1. ARIMIDEX [Suspect]
     Indication: BREAST CANCER
     Route: 048
     Dates: start: 20041001
  2. FOSAMAX [Concomitant]

REACTIONS (5)
  - ADRENAL DISORDER [None]
  - BONE DENSITY DECREASED [None]
  - DRUG INEFFECTIVE [None]
  - METASTASES TO SPINE [None]
  - OSTEOPOROSIS [None]
